FAERS Safety Report 12342319 (Version 1)
Quarter: 2016Q2

REPORT INFORMATION
  Report Type: Spontaneous
  Country: US (occurrence: US)
  Receive Date: 20160506
  Receipt Date: 20160506
  Transmission Date: 20160815
  Serious: No
  Sender: FDA-Public Use
  Company Number: US-PFIZER INC-2016206414

PATIENT
  Age: 80 Year
  Sex: Male
  Weight: 95.25 kg

DRUGS (2)
  1. ATORVASTATIN CALCIUM. [Suspect]
     Active Substance: ATORVASTATIN CALCIUM
     Dosage: 40 MG, 1X/DAY
  2. ZOCOR [Suspect]
     Active Substance: SIMVASTATIN
     Dosage: UNK UNK, 1X/DAY
     Dates: start: 1990

REACTIONS (4)
  - Hypersensitivity [Unknown]
  - Pain [Unknown]
  - Myalgia [Unknown]
  - Bone pain [Unknown]
